FAERS Safety Report 16350839 (Version 2)
Quarter: 2019Q2

REPORT INFORMATION
  Report Type: Spontaneous
  Country: IT (occurrence: IT)
  Receive Date: 20190524
  Receipt Date: 20190531
  Transmission Date: 20190711
  Serious: Yes (Hospitalization, Other)
  Sender: FDA-Public Use
  Company Number: IT-ALKEM LABORATORIES LIMITED-IT-ALKEM-2019-04523

PATIENT
  Age: 30 Month
  Sex: Female

DRUGS (2)
  1. METHADONE HYDROCHLORIDE. [Suspect]
     Active Substance: METHADONE HYDROCHLORIDE
     Indication: PRODUCT USED FOR UNKNOWN INDICATION
     Dosage: UNK
     Route: 063
  2. METHADONE HYDROCHLORIDE. [Suspect]
     Active Substance: METHADONE HYDROCHLORIDE
     Dosage: 20 MILLIGRAM
     Route: 048

REACTIONS (5)
  - Accidental overdose [Unknown]
  - Toxicity to various agents [Unknown]
  - Exposure via breast milk [Unknown]
  - Toxic encephalopathy [Recovered/Resolved]
  - Coma [Recovered/Resolved]
